FAERS Safety Report 18247472 (Version 1)
Quarter: 2020Q3

REPORT INFORMATION
  Report Type: Spontaneous
  Country: US (occurrence: US)
  Receive Date: 20200501
  Receipt Date: 20200501
  Transmission Date: 20201103
  Serious: No
  Sender: FDA-Public Use
  Company Number: None

PATIENT
  Age: 73 Year
  Sex: Female

DRUGS (3)
  1. CEFEPIME [Suspect]
     Active Substance: CEFEPIME HYDROCHLORIDE
     Indication: COVID-19
     Route: 042
     Dates: start: 2020
  2. CLARITHROMYCIN. [Suspect]
     Active Substance: CLARITHROMYCIN
     Route: 048
  3. MOXIFLOXACIN. [Suspect]
     Active Substance: MOXIFLOXACIN
     Route: 048
     Dates: start: 2020

REACTIONS (1)
  - SARS-CoV-2 test positive [None]
